FAERS Safety Report 12544742 (Version 3)
Quarter: 2016Q3

REPORT INFORMATION
  Report Type: Spontaneous
  Country: US (occurrence: US)
  Receive Date: 20160711
  Receipt Date: 20160808
  Transmission Date: 20161109
  Serious: Yes (Hospitalization, Other)
  Sender: FDA-Public Use
  Company Number: US-PFIZER INC-2016337304

PATIENT
  Age: 32 Year
  Sex: Female

DRUGS (3)
  1. VENLAFAXINE XR [Suspect]
     Active Substance: VENLAFAXINE HYDROCHLORIDE
     Indication: BIPOLAR II DISORDER
  2. VENLAFAXINE XR [Suspect]
     Active Substance: VENLAFAXINE HYDROCHLORIDE
     Indication: DEPRESSION
     Dosage: 75-150 MG/DAY
     Route: 048
     Dates: start: 2011, end: 201303
  3. VENLAFAXINE XR [Suspect]
     Active Substance: VENLAFAXINE HYDROCHLORIDE
     Indication: ANXIETY

REACTIONS (9)
  - Anxiety [Recovering/Resolving]
  - Frustration tolerance decreased [Recovering/Resolving]
  - Suicidal ideation [Recovered/Resolved]
  - Irritability [Recovering/Resolving]
  - Condition aggravated [Recovering/Resolving]
  - Depression [Unknown]
  - Condition aggravated [Unknown]
  - Disturbance in attention [Not Recovered/Not Resolved]
  - Suicidal behaviour [Unknown]

NARRATIVE: CASE EVENT DATE: 2012
